FAERS Safety Report 4950964-2 (Version None)
Quarter: 2006Q1

REPORT INFORMATION
  Report Type: 
  Country: None (occurrence: None)
  Receive Date: 20060315
  Receipt Date: 20060228
  Transmission Date: 20060701
  Serious: Yes (Other)
  Sender: FDA-Public Use
  Company Number: FR200601002276

PATIENT
  Age: 60 Year
  Sex: Female
  Weight: 64 kg

DRUGS (4)
  1. EVISTA [Suspect]
     Indication: OSTEOPOROSIS PROPHYLAXIS
     Dosage: 60 MG, DAILY (1/D), ORAL
     Route: 048
     Dates: start: 20050601, end: 20051025
  2. SPIROCTAZINE (ALTIZIDE, SPIRONOLACTONE) [Concomitant]
  3. CACIT D3 (CALCIUM CARBONATE, COLECALCIFEROL) [Concomitant]
  4. STILNOX /FRA/ (ZOLPIDEM) [Concomitant]

REACTIONS (8)
  - ALANINE AMINOTRANSFERASE INCREASED [None]
  - ALPHA 1 GLOBULIN INCREASED [None]
  - ASPARTATE AMINOTRANSFERASE INCREASED [None]
  - EOSINOPHIL COUNT INCREASED [None]
  - JOINT EFFUSION [None]
  - POLYARTHRITIS [None]
  - SERUM FERRITIN INCREASED [None]
  - TENOSYNOVITIS [None]
